FAERS Safety Report 7825636-7 (Version None)
Quarter: 2011Q4

REPORT INFORMATION
  Report Type: 
  Country: None (occurrence: None)
  Receive Date: 20111017
  Receipt Date: 20100429
  Transmission Date: 20120403
  Serious: No
  Sender: FDA-Public Use
  Company Number: 2010BH011991

PATIENT

DRUGS (1)
  1. ANTIHEMOPHILIC FACTOR NOS [Suspect]
     Indication: HAEMOPHILIA

REACTIONS (2)
  - FATIGUE [None]
  - ARTHRALGIA [None]
